FAERS Safety Report 8887453 (Version 1)
Quarter: 2012Q4

REPORT INFORMATION
  Report Type: 
  Country: IN (occurrence: IN)
  Receive Date: 20121105
  Receipt Date: 20121105
  Transmission Date: 20130627
  Serious: Yes (Death, Other)
  Sender: FDA-Public Use
  Company Number: IN-BAYER-2012-113456

PATIENT

DRUGS (2)
  1. ACETYLSALICYLIC ACID({=100 MG) [Suspect]
     Route: 064
  2. PREDNISOLONE [Suspect]
     Route: 064

REACTIONS (3)
  - Multiple congenital abnormalities [Fatal]
  - Premature baby [Not Recovered/Not Resolved]
  - Foetal exposure timing unspecified [None]
